FAERS Safety Report 21787877 (Version 2)
Quarter: 2023Q4

REPORT INFORMATION
  Report Type: Spontaneous
  Country: US (occurrence: US)
  Receive Date: 20221228
  Receipt Date: 20231206
  Transmission Date: 20240110
  Serious: No
  Sender: FDA-Public Use
  Company Number: US-SA-SAC20221208000708

PATIENT
  Age: 30 Year
  Sex: Male

DRUGS (1)
  1. DUPIXENT [Suspect]
     Active Substance: DUPILUMAB
     Indication: Eczema
     Dosage: 300 MG, QOW
     Route: 058
     Dates: start: 202106

REACTIONS (7)
  - Nail disorder [Unknown]
  - Back pain [Unknown]
  - Conjunctivitis [Recovering/Resolving]
  - Dry eye [Unknown]
  - Eczema [Unknown]
  - Erythema [Unknown]
  - Skin exfoliation [Unknown]
